FAERS Safety Report 6640543-3 (Version None)
Quarter: 2010Q1

REPORT INFORMATION
  Report Type: 
  Country: None (occurrence: None)
  Receive Date: 20100302
  Receipt Date: 20100120
  Transmission Date: 20100710
  Serious: No
  Sender: FDA-Public Use
  Company Number: 2009296171

PATIENT
  Age: 89 Year
  Sex: Female
  Weight: 110.7 kg

DRUGS (1)
  1. TOVIAZ [Suspect]
     Indication: URINARY INCONTINENCE
     Dosage: 4 MG
     Dates: start: 20090911

REACTIONS (2)
  - DRUG INEFFECTIVE [None]
  - HYPOACUSIS [None]
